FAERS Safety Report 23741828 (Version 2)
Quarter: 2024Q2

REPORT INFORMATION
  Report Type: Spontaneous
  Country: JP (occurrence: JP)
  Receive Date: 20240415
  Receipt Date: 20240501
  Transmission Date: 20240715
  Serious: Yes (Hospitalization)
  Sender: FDA-Public Use
  Company Number: JP-KYOWAKIRIN-2024KK007622

PATIENT
  Age: 76 Year
  Sex: Male

DRUGS (2)
  1. DARBEPOETIN ALFA [Suspect]
     Active Substance: DARBEPOETIN ALFA
     Indication: Nephrogenic anaemia
     Dosage: 60 UG, 1X/2 WEEKS (THE PATIENT WAS ADMINISTERED DARBEPOETIN ALFA INJECTION SYRINGE ^KKF^ ONCE EVERY
     Route: 058
     Dates: start: 20240109, end: 20240404
  2. DARBEPOETIN ALFA [Suspect]
     Active Substance: DARBEPOETIN ALFA
     Dosage: 60 UG, 1X/2 WEEKS
     Route: 058
     Dates: start: 20240404

REACTIONS (2)
  - Hospitalisation [Unknown]
  - Inappropriate schedule of product administration [Recovered/Resolved]

NARRATIVE: CASE EVENT DATE: 20240404
